FAERS Safety Report 14602031 (Version 1)
Quarter: 2018Q1

REPORT INFORMATION
  Report Type: Spontaneous
  Country: IT (occurrence: IT)
  Receive Date: 20180306
  Receipt Date: 20180306
  Transmission Date: 20180509
  Serious: Yes (Hospitalization)
  Sender: FDA-Public Use
  Company Number: IT-CIPLA LTD.-2018IT08352

PATIENT

DRUGS (4)
  1. QUETIAPINE. [Suspect]
     Active Substance: QUETIAPINE
     Indication: DRUG ABUSE
     Dosage: UNK
     Route: 048
  2. ESCITALOPRAM [Suspect]
     Active Substance: ESCITALOPRAM OXALATE
     Indication: DRUG ABUSE
     Dosage: 270 MG, IN TOTAL
     Route: 048
  3. CARBOLITHIUM [Suspect]
     Active Substance: LITHIUM CARBONATE
     Indication: DRUG ABUSE
     Dosage: 5 DF, IN TOTAL
     Route: 048
  4. ETILTOX [Suspect]
     Active Substance: DISULFIRAM
     Indication: DRUG ABUSE
     Dosage: 9 DF, IN TOTAL
     Route: 048

REACTIONS (2)
  - Sopor [Unknown]
  - Drug abuse [Unknown]

NARRATIVE: CASE EVENT DATE: 20161204
